FAERS Safety Report 7465478-8 (Version None)
Quarter: 2011Q2

REPORT INFORMATION
  Report Type: 
  Country: None (occurrence: None)
  Receive Date: 20110509
  Receipt Date: 20090411
  Transmission Date: 20111010
  Serious: Yes (Death, Hospitalization, Other)
  Sender: FDA-Public Use
  Company Number: US-BAYER-200917662NA

PATIENT
  Age: 62 Year
  Sex: Male
  Weight: 113.38 kg

DRUGS (20)
  1. FENTANYL [Concomitant]
     Dosage: UNK
     Route: 042
     Dates: start: 20060407
  2. LASIX [Concomitant]
     Dosage: UNK
     Route: 042
     Dates: start: 20060407
  3. MANNITOL [Concomitant]
     Dosage: 100 ML
     Route: 042
  4. CRYOPRECIPITATES [Concomitant]
     Dosage: 12 U, UNK
     Route: 042
     Dates: start: 20060407, end: 20060407
  5. TOPROL-XL [Concomitant]
     Indication: HYPERTENSION
     Dosage: 25 MG, QD
     Route: 048
     Dates: start: 20010401, end: 20060401
  6. HEPARIN [Concomitant]
     Dosage: 46000 UNITS
     Route: 042
     Dates: start: 20060407
  7. PLATELETS [Concomitant]
     Dosage: 4 U, UNK
     Route: 042
     Dates: start: 20060407, end: 20060407
  8. ALTACE [Concomitant]
     Indication: BLOOD PRESSURE MANAGEMENT
     Dosage: 2.5 MG, QD
     Dates: start: 20050801, end: 20060401
  9. MILRINONE [Concomitant]
     Dosage: 0.5MCG/KG/MIN
     Route: 042
     Dates: start: 20060407
  10. TRASYLOL [Suspect]
     Indication: CORONARY ARTERY BYPASS
     Dosage: 2 ML, UNK, INITIAL TEST DOSE
     Route: 042
     Dates: start: 20060407, end: 20060407
  11. TRASYLOL [Suspect]
     Indication: HIGH FREQUENCY ABLATION
  12. PROTAMINE [Concomitant]
     Dosage: UNK
     Route: 042
     Dates: start: 20060407
  13. HUMAN RED BLOOD CELLS [Concomitant]
     Dosage: 7 U, UNK
     Route: 042
     Dates: start: 20060407, end: 20060407
  14. FRESH FROZEN PLASMA [Concomitant]
     Dosage: 12 U, UNK
     Route: 042
     Dates: start: 20060407, end: 20060407
  15. LASIX [Concomitant]
     Dosage: 40 MG, QD
     Dates: start: 20000901, end: 20060401
  16. TRASYLOL [Suspect]
     Indication: MITRAL VALVE REPAIR
     Dosage: 50 ML/HR INFUSION
     Route: 042
     Dates: start: 20060407, end: 20060407
  17. AMIODARONE [Concomitant]
     Dosage: UNK
     Route: 042
     Dates: start: 20060407
  18. TRASYLOL [Suspect]
     Indication: AORTIC VALVE REPLACEMENT
     Dosage: 200 ML LOADING DOSE
     Route: 042
     Dates: start: 20060407, end: 20060407
  19. AMARYL [Concomitant]
     Indication: DIABETES MELLITUS
     Dosage: 4 MG, QD
     Dates: start: 20000801, end: 20060401
  20. COUMADIN [Concomitant]
     Indication: ANTICOAGULANT THERAPY
     Dosage: 2.5 MG, QD
     Dates: start: 20000101, end: 20060401

REACTIONS (9)
  - INJURY [None]
  - DEATH [None]
  - FEAR [None]
  - PAIN [None]
  - UNEVALUABLE EVENT [None]
  - ANHEDONIA [None]
  - DEPRESSION [None]
  - RENAL FAILURE [None]
  - ANXIETY [None]
